FAERS Safety Report 17215127 (Version 1)
Quarter: 2019Q4

REPORT INFORMATION
  Report Type: Report from Study
  Country: US (occurrence: US)
  Receive Date: 20191230
  Receipt Date: 20191230
  Transmission Date: 20200122
  Serious: No
  Sender: FDA-Public Use
  Company Number: US-CLOVIS ONCOLOGY-CLO-2019-002088

PATIENT
  Age: 70 Year
  Sex: Female

DRUGS (1)
  1. RUBRACA [Suspect]
     Active Substance: RUCAPARIB CAMSYLATE
     Indication: FALLOPIAN TUBE CANCER
     Dosage: 600 MG, BID
     Route: 048
     Dates: start: 20191003, end: 20191014

REACTIONS (6)
  - Abdominal discomfort [Recovered/Resolved]
  - Glossodynia [Not Recovered/Not Resolved]
  - Nausea [Not Recovered/Not Resolved]
  - Rash [Unknown]
  - Fatigue [Not Recovered/Not Resolved]
  - Taste disorder [Not Recovered/Not Resolved]

NARRATIVE: CASE EVENT DATE: 201910
